FAERS Safety Report 6199380-9 (Version None)
Quarter: 2009Q2

REPORT INFORMATION
  Report Type: 
  Country: None (occurrence: None)
  Receive Date: 20090522
  Receipt Date: 20081201
  Transmission Date: 20091009
  Serious: No
  Sender: FDA-Public Use
  Company Number: US-BAYER-200839769NA

PATIENT
  Age: 48 Year
  Sex: Female

DRUGS (3)
  1. CAMPATH [Suspect]
     Indication: MULTIPLE SCLEROSIS
     Route: 042
     Dates: start: 20080801, end: 20080801
  2. BACTRIM [Concomitant]
     Indication: INFECTION PROPHYLAXIS
  3. CYCLOVERE [Concomitant]
     Indication: INFECTION PROPHYLAXIS

REACTIONS (1)
  - FATIGUE [None]
